FAERS Safety Report 7228131-1 (Version None)
Quarter: 2011Q1

REPORT INFORMATION
  Report Type: 
  Country: None (occurrence: None)
  Receive Date: 20110114
  Receipt Date: 20101229
  Transmission Date: 20110831
  Serious: No
  Sender: FDA-Public Use
  Company Number: US-B.I. PHARMACEUTICALS,INC./RIDGEFIELD-2010-BP-13205BP

PATIENT
  Age: 66 Year
  Sex: Female

DRUGS (5)
  1. PRADAXA [Suspect]
     Indication: ATRIAL FIBRILLATION
  2. CRESTOR [Concomitant]
     Dosage: 2 MG
  3. BENICAR HCT [Concomitant]
  4. PRADAXA [Suspect]
     Indication: CEREBROVASCULAR ACCIDENT PROPHYLAXIS
     Dosage: 300 MG
     Route: 048
     Dates: start: 20101115
  5. PRADAXA [Suspect]
     Indication: THROMBOSIS

REACTIONS (3)
  - DYSPEPSIA [None]
  - FLATULENCE [None]
  - ABDOMINAL DISTENSION [None]
